FAERS Safety Report 7147529-3 (Version None)
Quarter: 2010Q4

REPORT INFORMATION
  Report Type: 
  Country: None (occurrence: None)
  Receive Date: 20101209
  Receipt Date: 20040706
  Transmission Date: 20110411
  Serious: Yes (Death, Hospitalization)
  Sender: FDA-Public Use
  Company Number: US-ACTELION-A-US2004-07260

PATIENT
  Sex: Female

DRUGS (2)
  1. TRACLEER [Suspect]
     Indication: PULMONARY ARTERIAL HYPERTENSION
     Dosage: UNK/UNK
     Route: 048
  2. CELEBREX [Concomitant]

REACTIONS (13)
  - BLOOD CREATININE INCREASED [None]
  - CARDIOMEGALY [None]
  - DEATH [None]
  - ECHOCARDIOGRAM ABNORMAL [None]
  - HEPATIC FAILURE [None]
  - HYPOTENSION [None]
  - HYPOXIA [None]
  - PERICARDIAL EFFUSION [None]
  - PLATELET AGGREGATION INCREASED [None]
  - PLATELET COUNT DECREASED [None]
  - PLEURAL FIBROSIS [None]
  - RIGHT VENTRICULAR FAILURE [None]
  - SHOCK [None]
